FAERS Safety Report 4630481-X (Version None)
Quarter: 2005Q2

REPORT INFORMATION
  Report Type: 
  Country: None (occurrence: None)
  Receive Date: 20050408
  Receipt Date: 20050330
  Transmission Date: 20051028
  Serious: Yes (Hospitalization, Other)
  Sender: FDA-Public Use
  Company Number: US-JNJFOC-20050400971

PATIENT
  Age: 16 Year
  Sex: Male

DRUGS (2)
  1. FENTANYL [Suspect]
     Indication: INTENTIONAL MISUSE
     Route: 065
     Dates: start: 20050325
  2. OXYCONTIN [Suspect]
     Indication: INTENTIONAL MISUSE
     Route: 065
     Dates: start: 20050325

REACTIONS (1)
  - OVERDOSE [None]
